FAERS Safety Report 20810209 (Version 1)
Quarter: 2022Q2

REPORT INFORMATION
  Report Type: Report from Study
  Country: IT (occurrence: IT)
  Receive Date: 20220510
  Receipt Date: 20220510
  Transmission Date: 20220721
  Serious: Yes (Life-Threatening)
  Sender: FDA-Public Use
  Company Number: IT-CELLTRION HEALTHCARE HUNGARY KFT-2019IT020718

PATIENT
  Age: 50 Year
  Sex: Female
  Weight: 69 kg

DRUGS (12)
  1. DOXORUBICIN HYDROCHLORIDE [Suspect]
     Active Substance: DOXORUBICIN HYDROCHLORIDE
     Indication: Diffuse large B-cell lymphoma
     Dosage: UNK
     Route: 042
  2. VINCRISTINE SULFATE [Suspect]
     Active Substance: VINCRISTINE SULFATE
     Indication: Diffuse large B-cell lymphoma
     Route: 042
  3. TRUXIMA [Suspect]
     Active Substance: RITUXIMAB-ABBS
     Indication: Diffuse large B-cell lymphoma
     Dosage: 667.50 MG, EVERY 21 DAYS
     Route: 042
     Dates: start: 20180705
  4. TRUXIMA [Suspect]
     Active Substance: RITUXIMAB-ABBS
     Dosage: 667.50 MG, EVERY 21 DAYS
     Route: 042
     Dates: start: 20181012
  5. TRUXIMA [Suspect]
     Active Substance: RITUXIMAB-ABBS
     Dosage: 667.50 MG, EVERY 21 DAYS
     Route: 042
     Dates: start: 20180831
  6. TRUXIMA [Suspect]
     Active Substance: RITUXIMAB-ABBS
     Dosage: 667.50 MG, EVERY 21 DAYS
     Route: 042
     Dates: start: 20180921
  7. TRUXIMA [Suspect]
     Active Substance: RITUXIMAB-ABBS
     Dosage: 667.50 MG, EVERY 21 DAYS
     Route: 042
     Dates: start: 20180720
  8. TRUXIMA [Suspect]
     Active Substance: RITUXIMAB-ABBS
     Dosage: UNK, EVERY 21 DAYS
     Route: 042
     Dates: start: 20181103
  9. MABTHERA [Suspect]
     Active Substance: RITUXIMAB
     Dosage: UNK
     Route: 042
     Dates: start: 20181103
  10. MABTHERA [Suspect]
     Active Substance: RITUXIMAB
     Dosage: UNK, EVERY 21 DAYS
     Route: 042
     Dates: start: 20180810
  11. CYCLOPHOSPHAMIDE [Suspect]
     Active Substance: CYCLOPHOSPHAMIDE
     Indication: Diffuse large B-cell lymphoma
     Dosage: UNK
     Route: 042
  12. PREDNISONE [Suspect]
     Active Substance: PREDNISONE
     Indication: Diffuse large B-cell lymphoma
     Dosage: UNK
     Route: 042

REACTIONS (4)
  - Neutropenia [Recovered/Resolved]
  - Sensation of foreign body [Recovered/Resolved]
  - Asthenia [Recovered/Resolved]
  - Nausea [Recovered/Resolved]

NARRATIVE: CASE EVENT DATE: 20180705
